FAERS Safety Report 9450859 (Version 1)
Quarter: 2013Q3

REPORT INFORMATION
  Report Type: Report from Study
  Country: DE (occurrence: DE)
  Receive Date: 20130809
  Receipt Date: 20130809
  Transmission Date: 20140515
  Serious: Yes (Hospitalization)
  Sender: FDA-Public Use
  Company Number: DE-PFIZER INC-2013228985

PATIENT
  Sex: Male

DRUGS (8)
  1. DOXORUBICIN HCL [Suspect]
     Indication: B-CELL LYMPHOMA
     Dosage: 94 MG, CYCLIC (DAY 1)
     Route: 042
     Dates: start: 20130715
  2. LEUCOVORIN [Suspect]
     Indication: B-CELL LYMPHOMA
     Dosage: UNK
  3. CYCLOPHOSPHAMIDE [Suspect]
     Indication: B-CELL LYMPHOMA
     Dosage: 1403 MG, CYCLIC (DAY 1)
     Route: 042
     Dates: start: 20130715
  4. VINCRISTINE [Suspect]
     Indication: B-CELL LYMPHOMA
     Dosage: 2 MG, CYCLIC (DAY 1)
     Route: 042
     Dates: start: 20130715
  5. PREDNISONE [Suspect]
     Indication: B-CELL LYMPHOMA
     Dosage: 100 MG, CYCLIC (DAY 1 AND 5)
     Route: 065
  6. RITUXIMAB [Suspect]
     Indication: B-CELL LYMPHOMA
     Dosage: UNK
     Route: 042
     Dates: start: 20130708
  7. PEGFILGRASTIM [Suspect]
     Indication: B-CELL LYMPHOMA
     Dosage: 6 MG, CYCLIC (DAY 4)
     Route: 058
     Dates: start: 20130719
  8. METHOTREXATE ^LEDERLE^ [Suspect]
     Indication: B-CELL LYMPHOMA
     Dosage: 1.95 G/M2, CYCLIC (DAY 1)
     Route: 042
     Dates: start: 20130710, end: 20130710

REACTIONS (1)
  - Pneumonia [Unknown]
